FAERS Safety Report 7059603-0 (Version None)
Quarter: 2010Q4

REPORT INFORMATION
  Report Type: 
  Country: None (occurrence: None)
  Receive Date: 20101025
  Receipt Date: 20101019
  Transmission Date: 20110411
  Serious: Yes (Other)
  Sender: FDA-Public Use
  Company Number: BR-BAYER-201018006LA

PATIENT
  Age: 39 Year
  Sex: Female
  Weight: 55 kg

DRUGS (2)
  1. YAZ [Suspect]
     Indication: PRODUCT USED FOR UNKNOWN INDICATION
     Route: 048
     Dates: start: 20090101
  2. YAZ [Suspect]
     Dosage: STOPPED FOR 30 DAYS DUE TO EVENTS AND RETURNED
     Route: 048

REACTIONS (7)
  - ARRHYTHMIA [None]
  - DIPLOPIA [None]
  - DIZZINESS [None]
  - HYPOKALAEMIA [None]
  - LABYRINTHITIS [None]
  - MALAISE [None]
  - POLLAKIURIA [None]
